FAERS Safety Report 14730856 (Version 2)
Quarter: 2018Q2

REPORT INFORMATION
  Report Type: Report from Study
  Country: AU (occurrence: AU)
  Receive Date: 20180406
  Receipt Date: 20180419
  Transmission Date: 20180711
  Serious: Yes (Hospitalization, Other)
  Sender: FDA-Public Use
  Company Number: AU-MYLANLABS-2018M1018871

PATIENT
  Age: 75 Year
  Sex: Female

DRUGS (1)
  1. CLOZARIL [Suspect]
     Active Substance: CLOZAPINE
     Indication: SCHIZOPHRENIA
     Dosage: 25 MG, UNK
     Route: 048
     Dates: start: 20180222

REACTIONS (13)
  - Eosinophil count increased [Recovered/Resolved]
  - Monocyte count decreased [Recovered/Resolved]
  - Neutrophil count abnormal [Unknown]
  - Hospitalisation [Unknown]
  - Neutropenia [Unknown]
  - White blood cell count increased [Recovered/Resolved]
  - Thrombocytosis [Recovered/Resolved]
  - Neutrophil count increased [Recovered/Resolved]
  - Lymphocyte count decreased [Recovered/Resolved]
  - Myelocyte present [Not Recovered/Not Resolved]
  - Mean platelet volume decreased [Recovered/Resolved]
  - C-reactive protein increased [Not Recovered/Not Resolved]
  - Haematocrit decreased [Recovered/Resolved]

NARRATIVE: CASE EVENT DATE: 2018
